FAERS Safety Report 22135685 (Version 2)
Quarter: 2023Q1

REPORT INFORMATION
  Report Type: Spontaneous
  Country: US (occurrence: US)
  Receive Date: 20230324
  Receipt Date: 20230328
  Transmission Date: 20230418
  Serious: No
  Sender: FDA-Public Use
  Company Number: US-UNITED THERAPEUTICS-UNT-2023-007883

PATIENT
  Age: 84 Year
  Sex: Female

DRUGS (2)
  1. TYVASO [Suspect]
     Active Substance: TREPROSTINIL
     Indication: Pulmonary arterial hypertension
     Dosage: 18 ?G, QID
     Dates: start: 202303
  2. TYVASO [Suspect]
     Active Substance: TREPROSTINIL
     Dosage: UNK
     Dates: start: 20230308

REACTIONS (6)
  - Fatigue [Unknown]
  - Dyspnoea exertional [Unknown]
  - Cough [Unknown]
  - Oropharyngeal discomfort [Unknown]
  - Headache [Unknown]
  - Chest discomfort [Unknown]

NARRATIVE: CASE EVENT DATE: 20230301
